FAERS Safety Report 5983625-1 (Version None)
Quarter: 2008Q4

REPORT INFORMATION
  Report Type: 
  Country: None (occurrence: None)
  Receive Date: 20081208
  Receipt Date: 20081128
  Transmission Date: 20090506
  Serious: Yes (Hospitalization)
  Sender: FDA-Public Use
  Company Number: GB-MERCK-0812GBR00002

PATIENT
  Age: 74 Year
  Sex: Female
  Weight: 102 kg

DRUGS (10)
  1. ZOCOR [Suspect]
     Indication: MYOCARDIAL INFARCTION
     Route: 048
     Dates: start: 20080701, end: 20080801
  2. BECLOMETHASONE DIPROPIONATE [Concomitant]
     Route: 065
  3. PEPPERMINT OIL [Concomitant]
     Route: 065
  4. FUROSEMIDE [Concomitant]
     Route: 065
  5. ALGINIC ACID AND ALUMINUM HYDROXIDE AND MAGNESIUM TRISILICATE AND SODI [Concomitant]
     Route: 065
  6. NITROGLYCERIN [Concomitant]
     Route: 065
  7. OMEPRAZOLE [Concomitant]
     Route: 065
  8. ACETAMINOPHEN [Concomitant]
     Route: 065
  9. ALBUTEROL [Concomitant]
     Route: 065
  10. AMITRIPTYLINE HYDROCHLORIDE AND PERPHENAZINE [Concomitant]
     Route: 065

REACTIONS (3)
  - COUGH [None]
  - DYSPNOEA [None]
  - FATIGUE [None]
